FAERS Safety Report 7953934-5 (Version None)
Quarter: 2011Q4

REPORT INFORMATION
  Report Type: 
  Country: None (occurrence: None)
  Receive Date: 20111202
  Receipt Date: 20111123
  Transmission Date: 20120403
  Serious: Yes (Other)
  Sender: FDA-Public Use
  Company Number: LK-PFIZER INC-2011291241

PATIENT
  Age: 65 Year
  Sex: Male

DRUGS (1)
  1. AMIODARONE HCL [Suspect]
     Dosage: 200 MG, 3X/DAY

REACTIONS (5)
  - HEPATIC LESION [None]
  - SPLENIC LESION [None]
  - NEUROPATHY PERIPHERAL [None]
  - HEPATIC ENZYME INCREASED [None]
  - PULMONARY MASS [None]
